FAERS Safety Report 16163636 (Version 1)
Quarter: 2019Q2

REPORT INFORMATION
  Report Type: Spontaneous
  Country: ES (occurrence: ES)
  Receive Date: 20190405
  Receipt Date: 20190405
  Transmission Date: 20190711
  Serious: Yes (Death)
  Sender: FDA-Public Use
  Company Number: ES-BAYER-2019-067885

PATIENT
  Age: 61 Year
  Sex: Male

DRUGS (2)
  1. TICAGRELOR. [Interacting]
     Active Substance: TICAGRELOR
  2. ACETYLSALICYLIC ACID (CARDIO) [Suspect]
     Active Substance: ASPIRIN
     Dosage: UNK

REACTIONS (4)
  - Gastric ulcer [Fatal]
  - Product administration error [Fatal]
  - Upper gastrointestinal haemorrhage [Fatal]
  - Labelled drug-drug interaction medication error [Fatal]
